FAERS Safety Report 19475064 (Version 1)
Quarter: 2021Q2

REPORT INFORMATION
  Report Type: Spontaneous
  Country: US (occurrence: US)
  Receive Date: 20210630
  Receipt Date: 20210630
  Transmission Date: 20210717
  Serious: Yes (Other)
  Sender: FDA-Public Use
  Company Number: US-LUPIN LIMITED-2021-10438

PATIENT
  Age: 9 Year
  Sex: Female

DRUGS (7)
  1. CODEINE [Concomitant]
     Active Substance: CODEINE
     Indication: CROUP INFECTIOUS
     Dosage: UNK
     Route: 065
     Dates: start: 2020
  2. CEFTRIAXONE. [Suspect]
     Active Substance: CEFTRIAXONE
     Indication: COVID-19
     Dosage: UNK (NEBULISED)
     Dates: start: 2020
  3. DEXTROMETHORPHAN HYDROBROMIDE;DOXYLAMINE SUCCINATE;PARACETAMOL [Suspect]
     Active Substance: ACETAMINOPHEN\DEXTROMETHORPHAN HYDROBROMIDE\DOXYLAMINE SUCCINATE
     Indication: CROUP INFECTIOUS
     Dosage: UNK
     Route: 065
     Dates: start: 2020
  4. NORMAL SALINE [Suspect]
     Active Substance: SODIUM CHLORIDE
     Indication: CROUP INFECTIOUS
     Dosage: UNK (NEBULISED)
     Dates: start: 2020
  5. ALBUTEROL SULFATE INHALATION AEROSOL [Suspect]
     Active Substance: ALBUTEROL SULFATE
     Indication: CROUP INFECTIOUS
     Dosage: UNK (4 PUFFS)
     Dates: start: 2020
  6. RACEPINEPHRINE [Suspect]
     Active Substance: RACEPINEPHRINE
     Indication: CROUP INFECTIOUS
     Dosage: UNK (NEBULISED)
     Dates: start: 2020
  7. LORAZEPAM. [Concomitant]
     Active Substance: LORAZEPAM
     Indication: CROUP INFECTIOUS
     Dosage: UNK
     Route: 065
     Dates: start: 2020

REACTIONS (2)
  - Off label use [Unknown]
  - Drug ineffective [Unknown]

NARRATIVE: CASE EVENT DATE: 2020
